FAERS Safety Report 8815684 (Version 1)
Quarter: 2012Q4

REPORT INFORMATION
  Report Type: 
  Country: US (occurrence: US)
  Receive Date: 20120928
  Receipt Date: 20120928
  Transmission Date: 20130627
  Serious: Yes (Hospitalization, Other)
  Sender: FDA-Public Use
  Company Number: US-PFIZER INC-2012236906

PATIENT
  Age: 65 Year
  Sex: Male

DRUGS (1)
  1. ZYVOX [Suspect]
     Indication: CELLULITIS
     Dosage: UNK
     Route: 048

REACTIONS (2)
  - Cellulitis [Recovering/Resolving]
  - Disease recurrence [Recovering/Resolving]
